FAERS Safety Report 16125831 (Version 2)
Quarter: 2019Q3

REPORT INFORMATION
  Report Type: Spontaneous
  Country: FR (occurrence: FR)
  Receive Date: 20190328
  Receipt Date: 20190916
  Transmission Date: 20191004
  Serious: Yes (Hospitalization, Other)
  Sender: FDA-Public Use
  Company Number: FR-AUROBINDO-AUR-APL-2019-016222

PATIENT
  Age: 52 Year
  Sex: Male

DRUGS (4)
  1. REVAXIS [Suspect]
     Active Substance: DIPHTHERIA AND TETANUS TOXOIDS AND POLIOVIRUS VACCINE ANTIGENS
     Indication: IMMUNISATION
     Dosage: 1 DOSAGE FORM
     Route: 030
     Dates: start: 20190223, end: 20190223
  2. PANTOPRAZOLE [Suspect]
     Active Substance: PANTOPRAZOLE
     Indication: DUODENAL STENOSIS
     Dosage: 40 MILLIGRAM, DAILY
     Route: 042
     Dates: start: 20190224, end: 20190227
  3. PRIMPERAN [Suspect]
     Active Substance: METOCLOPRAMIDE HYDROCHLORIDE
     Indication: VOMITING
     Dosage: 20 MILLIGRAM, ONCE A DAY
     Route: 042
     Dates: start: 20190223, end: 20190223
  4. HYDROXYZINE RENAUDIN [Suspect]
     Active Substance: HYDROXYZINE HYDROCHLORIDE
     Indication: PRODUCT USED FOR UNKNOWN INDICATION
     Dosage: 50 MILLIGRAM, TOTAL
     Route: 042
     Dates: start: 20190224, end: 20190224

REACTIONS (2)
  - Acute kidney injury [Recovering/Resolving]
  - Condition aggravated [Recovered/Resolved]

NARRATIVE: CASE EVENT DATE: 20190226
